FAERS Safety Report 5095253-3 (Version None)
Quarter: 2006Q3

REPORT INFORMATION
  Report Type: 
  Country: None (occurrence: None)
  Receive Date: 20060731
  Receipt Date: 20060418
  Transmission Date: 20061208
  Serious: No
  Sender: FDA-Public Use
  Company Number: 2006PV012250

PATIENT
  Age: 68 Year
  Sex: Female
  Weight: 83.9154 kg

DRUGS (1)
  1. BYETTA [Suspect]
     Indication: WEIGHT CONTROL
     Dosage: 5 MCG BID SC
     Route: 058
     Dates: start: 20060301

REACTIONS (4)
  - CONSTIPATION [None]
  - DECREASED APPETITE [None]
  - ENERGY INCREASED [None]
  - WEIGHT DECREASED [None]
